FAERS Safety Report 10100939 (Version 4)
Quarter: 2014Q2

REPORT INFORMATION
  Report Type: Report from Study
  Country: CA (occurrence: CA)
  Receive Date: 20140424
  Receipt Date: 20140529
  Transmission Date: 20141212
  Serious: Yes (Other)
  Sender: FDA-Public Use
  Company Number: CA-ROCHE-1276096

PATIENT
  Age: 58 Year
  Sex: Female
  Weight: 100 kg

DRUGS (7)
  1. ACTEMRA [Suspect]
     Indication: RHEUMATOID ARTHRITIS
     Route: 042
     Dates: start: 20130812, end: 20140410
  2. METHOTREXATE [Concomitant]
     Route: 048
  3. PREDNISONE [Concomitant]
  4. SPIRIVA [Concomitant]
  5. VENTOLIN [Concomitant]
  6. SINGULAIR [Concomitant]
  7. PULMICORT [Concomitant]

REACTIONS (10)
  - Ear haemorrhage [Recovered/Resolved]
  - Otorrhoea [Recovered/Resolved]
  - Dyspnoea [Not Recovered/Not Resolved]
  - Nasopharyngitis [Recovering/Resolving]
  - Gastroenteritis viral [Recovering/Resolving]
  - Cough [Not Recovered/Not Resolved]
  - Arthralgia [Not Recovered/Not Resolved]
  - Malaise [Not Recovered/Not Resolved]
  - Pain in jaw [Recovered/Resolved]
  - Contusion [Not Recovered/Not Resolved]
